FAERS Safety Report 4666816-1 (Version None)
Quarter: 2005Q2

REPORT INFORMATION
  Report Type: 
  Country: None (occurrence: None)
  Receive Date: 20050519
  Receipt Date: 20041126
  Transmission Date: 20051028
  Serious: Yes (Life-Threatening, Hospitalization, Disabling)
  Sender: FDA-Public Use
  Company Number: DE-MERCK-0411DEU00529

PATIENT
  Age: 63 Year
  Sex: Female
  Weight: 84 kg

DRUGS (16)
  1. VIOXX [Suspect]
     Indication: ARTHRALGIA
     Route: 048
     Dates: start: 20010101, end: 20040707
  2. VIOXX [Suspect]
     Indication: BACK PAIN
     Route: 048
     Dates: start: 20010101, end: 20040707
  3. ASPIRIN [Concomitant]
     Indication: HEADACHE
     Route: 048
  4. HYPERICIN [Concomitant]
     Route: 065
  5. CARVEDILOL [Concomitant]
     Indication: DEPRESSION
     Route: 048
     Dates: start: 20010131, end: 20040707
  6. SALVIA [Concomitant]
     Indication: HYPERHIDROSIS
     Route: 048
     Dates: start: 20020816, end: 20031017
  7. TRAMADOL HYDROCHLORIDE [Concomitant]
     Indication: PAIN
     Route: 048
     Dates: start: 20021014, end: 20021121
  8. METOCLOPRAMIDE HYDROCHLORIDE [Concomitant]
     Indication: NAUSEA
     Route: 048
     Dates: start: 20030819, end: 20030824
  9. AMPHOTERICIN B [Concomitant]
     Indication: FUNGAL INFECTION
     Route: 048
     Dates: start: 20030422, end: 20030501
  10. CIPROFLOXACIN HYDROCHLORIDE [Concomitant]
     Indication: DIVERTICULITIS
     Route: 048
     Dates: start: 20030404, end: 20030414
  11. TRAMADOL HYDROCHLORIDE [Concomitant]
     Route: 048
     Dates: start: 20030124, end: 20030630
  12. LACTOBACILLUS HELVETICUS (AS DRUG) [Concomitant]
     Indication: DIARRHOEA
     Route: 048
     Dates: start: 20030320, end: 20030404
  13. LACTOBACILLUS ACIDOPHILUS (AS DRUG) [Concomitant]
     Indication: DIARRHOEA
     Route: 048
     Dates: start: 20030320, end: 20030404
  14. SACCHAROMYCES BOULARDII (AS DRUG) [Concomitant]
     Indication: DIARRHOEA
     Route: 048
     Dates: start: 20030514, end: 20030520
  15. ESCHERICHIA COLI (AS DRUG) [Concomitant]
     Indication: DIARRHOEA
     Route: 048
     Dates: start: 20030331, end: 20030430
  16. [THERAPY UNSPECIFIED] [Concomitant]
     Indication: HERPES ZOSTER
     Route: 065
     Dates: start: 20030301

REACTIONS (15)
  - ATRIAL FIBRILLATION [None]
  - COLITIS [None]
  - DEPRESSION [None]
  - DIARRHOEA [None]
  - DIZZINESS [None]
  - DYSPEPSIA [None]
  - FUNGAL INFECTION [None]
  - GASTROENTERITIS [None]
  - GASTROINTESTINAL DISORDER [None]
  - HERPES ZOSTER [None]
  - HYPERTENSION [None]
  - MYOCARDIAL INFARCTION [None]
  - NAUSEA [None]
  - PANIC DISORDER [None]
  - VENTRICULAR FIBRILLATION [None]
